FAERS Safety Report 5528843-1 (Version None)
Quarter: 2007Q4

REPORT INFORMATION
  Report Type: 
  Country: None (occurrence: None)
  Receive Date: 20071113
  Receipt Date: 20070818
  Transmission Date: 20080405
  Serious: No
  Sender: FDA-Public Use
  Company Number: 200715924US

PATIENT
  Age: 65 Year
  Sex: Female

DRUGS (5)
  1. APIDRA [Suspect]
     Indication: TYPE 2 DIABETES MELLITUS
     Dosage: SLIDING SCALE U
     Dates: start: 20070101
  2. APIDRA [Suspect]
     Indication: TYPE 2 DIABETES MELLITUS
     Dosage: 72 U ONCE
     Dates: start: 20070818
  3. LANTUS [Suspect]
     Indication: TYPE 2 DIABETES MELLITUS
     Dosage: 72 U
     Dates: start: 20070101
  4. OPTICLIK GREY [Suspect]
     Dates: start: 20070101
  5. .. [Concomitant]

REACTIONS (1)
  - WRONG DRUG ADMINISTERED [None]
